FAERS Safety Report 15727608 (Version 1)
Quarter: 2018Q4

REPORT INFORMATION
  Report Type: Spontaneous
  Country: US (occurrence: US)
  Receive Date: 20181217
  Receipt Date: 20181217
  Transmission Date: 20190205
  Serious: Yes (Other)
  Sender: FDA-Public Use
  Company Number: US-NOVEN PHARMACEUTICALS, INC.-US2017001438

PATIENT

DRUGS (6)
  1. VITAMIN D [Concomitant]
     Active Substance: CHOLECALCIFEROL
  2. PROZAC [Concomitant]
     Active Substance: FLUOXETINE HYDROCHLORIDE
  3. METAFOLIN [Concomitant]
     Indication: IN VITRO FERTILISATION
  4. PROGESTERONE. [Concomitant]
     Active Substance: PROGESTERONE
  5. PRENATAL [Concomitant]
     Active Substance: VITAMINS
  6. MINIVELLE [Suspect]
     Active Substance: ESTRADIOL
     Indication: PRODUCT USED FOR UNKNOWN INDICATION
     Dosage: UNK, UNKNOWN
     Route: 062
     Dates: start: 2017

REACTIONS (5)
  - Wrong technique in product usage process [Unknown]
  - Product adhesion issue [Unknown]
  - Product prescribing error [Unknown]
  - Maternal exposure during pregnancy [Not Recovered/Not Resolved]
  - No adverse event [Unknown]

NARRATIVE: CASE EVENT DATE: 2017
